FAERS Safety Report 20321566 (Version 1)
Quarter: 2022Q1

REPORT INFORMATION
  Report Type: Spontaneous
  Country: CN (occurrence: None)
  Receive Date: 20220111
  Receipt Date: 20220111
  Transmission Date: 20220423
  Serious: Yes (Death, Other)
  Sender: FDA-Public Use
  Company Number: CN-ROCHE-2994739

PATIENT
  Age: 57 Year
  Sex: Female

DRUGS (17)
  1. BEVACIZUMAB [Suspect]
     Active Substance: BEVACIZUMAB
     Indication: Lung adenocarcinoma
     Route: 065
  2. ALECTINIB [Suspect]
     Active Substance: ALECTINIB
     Indication: Lung adenocarcinoma
     Dosage: AT 150 MG/TABLET, 4 TABLETS/DAY
     Route: 048
  3. ALECTINIB [Suspect]
     Active Substance: ALECTINIB
     Dosage: AT 150 MG/TABLET, FOUR CAPSULES/TIME
     Route: 048
  4. ALECTINIB [Suspect]
     Active Substance: ALECTINIB
     Dosage: AT 10 MG/TABLET HALF A DAY
     Route: 048
  5. CRIZOTINIB [Suspect]
     Active Substance: CRIZOTINIB
     Indication: Lung adenocarcinoma
     Route: 065
  6. LEVOFLOXACIN [Concomitant]
     Active Substance: LEVOFLOXACIN
  7. PEMETREXED [Concomitant]
     Active Substance: PEMETREXED
     Indication: Lung adenocarcinoma
  8. CARBOPLATIN [Concomitant]
     Active Substance: CARBOPLATIN
     Indication: Lung adenocarcinoma
  9. APATINIB [Concomitant]
     Active Substance: APATINIB
     Indication: Lung adenocarcinoma
     Dosage: 0.25G EVERY OTHER DAY
     Route: 048
  10. APATINIB [Concomitant]
     Active Substance: APATINIB
     Dosage: LOW-DOSE
     Route: 048
  11. APATINIB [Concomitant]
     Active Substance: APATINIB
     Dosage: AT 0.25G/TABLET, ONE TABLET PER DAY
     Dates: end: 20171021
  12. GEMCITABINE [Concomitant]
     Active Substance: GEMCITABINE
     Indication: Lung adenocarcinoma
  13. CATEQUENTINIB [Concomitant]
     Active Substance: CATEQUENTINIB
     Indication: Lung adenocarcinoma
  14. BRIGATINIB [Concomitant]
     Active Substance: BRIGATINIB
     Indication: Lung adenocarcinoma
  15. MANNITOL [Concomitant]
     Active Substance: MANNITOL
  16. DOCETAXEL [Concomitant]
     Active Substance: DOCETAXEL
     Indication: Lung adenocarcinoma
  17. LORLATINIB [Concomitant]
     Active Substance: LORLATINIB
     Indication: Lung adenocarcinoma

REACTIONS (14)
  - Gastrointestinal disorder [Unknown]
  - Asthenia [Unknown]
  - Noninfective gingivitis [Unknown]
  - Loose tooth [Unknown]
  - Dysphonia [Unknown]
  - Drug resistance [Unknown]
  - Pruritus [Unknown]
  - Rash [Unknown]
  - Hypogeusia [Unknown]
  - Toothache [Unknown]
  - Dry mouth [Unknown]
  - Lipids increased [Unknown]
  - Visual impairment [Unknown]
  - Death [Fatal]
